FAERS Safety Report 12778272 (Version 1)
Quarter: 2016Q3

REPORT INFORMATION
  Report Type: Spontaneous
  Country: US (occurrence: US)
  Receive Date: 20160926
  Receipt Date: 20160926
  Transmission Date: 20161109
  Serious: No
  Sender: FDA-Public Use
  Company Number: US-ASTRAZENECA-2016SE96565

PATIENT
  Sex: Female
  Weight: 49.4 kg

DRUGS (2)
  1. SYMBICORT [Suspect]
     Active Substance: BUDESONIDE\FORMOTEROL FUMARATE DIHYDRATE
     Indication: CHRONIC OBSTRUCTIVE PULMONARY DISEASE
     Dosage: 160/4.5 UG, TWO PUFFS TWICE DAILY
     Route: 055
     Dates: start: 201512
  2. OXYCODONE [Concomitant]
     Active Substance: OXYCODONE
     Indication: BACK PAIN
     Dosage: 150/325 AS NEEDED
     Route: 048

REACTIONS (4)
  - Body height decreased [Unknown]
  - Off label use [Unknown]
  - Drug effect incomplete [Unknown]
  - Dyspnoea [Unknown]
